FAERS Safety Report 6170806-X (Version None)
Quarter: 2009Q2

REPORT INFORMATION
  Report Type: 
  Country: None (occurrence: None)
  Receive Date: 20090427
  Receipt Date: 20090414
  Transmission Date: 20091009
  Serious: Yes (Hospitalization)
  Sender: FDA-Public Use
  Company Number: 2009AL002127

PATIENT
  Sex: Female

DRUGS (7)
  1. HYDROCHLOROTHIAZDE TAB [Suspect]
     Dosage: 25 MG;PO
     Route: 048
  2. LANTUS [Concomitant]
  3. LACTOSE [Concomitant]
  4. GLYBURIDE [Concomitant]
  5. DIOVAN [Concomitant]
  6. LISINOPRIL [Concomitant]
  7. AMLODIPINE [Concomitant]

REACTIONS (2)
  - DEHYDRATION [None]
  - NASOPHARYNGITIS [None]
